FAERS Safety Report 6371696-2 (Version None)
Quarter: 2009Q3

REPORT INFORMATION
  Report Type: 
  Country: None (occurrence: None)
  Receive Date: 20090923
  Receipt Date: 20090604
  Transmission Date: 20100115
  Serious: Yes (Hospitalization, Other)
  Sender: FDA-Public Use
  Company Number: US-ASTRAZENECA-2008UW09985

PATIENT
  Sex: Female
  Weight: 56.7 kg

DRUGS (19)
  1. SEROQUEL [Suspect]
     Indication: DEPRESSION
     Route: 048
  2. SEROQUEL [Suspect]
     Indication: ANXIETY
     Route: 048
  3. SEROQUEL [Suspect]
     Dosage: 125 MG (25 MG QAM +50 MG AT 12:30 PM + 50 MG AT 5:45 PM)
     Route: 048
     Dates: start: 20080701
  4. SEROQUEL [Suspect]
     Dosage: 125 MG (25 MG QAM +50 MG AT 12:30 PM + 50 MG AT 5:45 PM)
     Route: 048
     Dates: start: 20080701
  5. SEROQUEL [Suspect]
     Dosage: 125 MG (25 MG QAM +25 MG AT 12:30 PM + 50 MG AT 5:45 PM)
     Route: 048
     Dates: start: 20080801
  6. SEROQUEL [Suspect]
     Dosage: 125 MG (25 MG QAM +25 MG AT 12:30 PM + 50 MG AT 5:45 PM)
     Route: 048
     Dates: start: 20080801
  7. AMBIEN [Concomitant]
  8. REMERON [Concomitant]
  9. OMEPRAZOLE [Concomitant]
     Route: 048
  10. KLONOPIN [Concomitant]
  11. CALCIUM [Concomitant]
  12. BENTYL [Concomitant]
  13. ASPIRIN [Concomitant]
     Dosage: 81 MG
  14. ACTINAL [Concomitant]
  15. OXAZEPAM [Concomitant]
  16. CRESTOR [Concomitant]
     Route: 048
  17. NORVASC [Concomitant]
  18. ASPIRIN [Concomitant]
  19. MIRALAX [Concomitant]

REACTIONS (13)
  - ABDOMINAL DISCOMFORT [None]
  - BLOOD SODIUM [None]
  - CONSTIPATION [None]
  - DEPRESSION [None]
  - DIZZINESS [None]
  - DRUG INEFFECTIVE [None]
  - DRY MOUTH [None]
  - FATIGUE [None]
  - HYPOTENSION [None]
  - SENSATION OF HEAVINESS [None]
  - SOMNOLENCE [None]
  - SYNCOPE [None]
  - THROAT IRRITATION [None]
